FAERS Safety Report 22658740 (Version 2)
Quarter: 2024Q2

REPORT INFORMATION
  Report Type: Spontaneous
  Country: US (occurrence: US)
  Receive Date: 20230630
  Receipt Date: 20240620
  Transmission Date: 20240716
  Serious: No
  Sender: FDA-Public Use
  Company Number: US-GALDERMA-US2023007427

PATIENT

DRUGS (1)
  1. ORACEA [Suspect]
     Active Substance: DOXYCYCLINE
     Indication: Alpha-1 antitrypsin deficiency
     Dosage: 1 DOSAGE FORM
     Route: 065
     Dates: start: 2017

REACTIONS (3)
  - Intentional product use issue [Recovered/Resolved]
  - Therapeutic response unexpected [Recovered/Resolved]
  - Drug effective for unapproved indication [Recovered/Resolved]
